FAERS Safety Report 4372932-4 (Version None)
Quarter: 2004Q2

REPORT INFORMATION
  Report Type: 
  Country: None (occurrence: None)
  Receive Date: 20040603
  Receipt Date: 20040519
  Transmission Date: 20050107
  Serious: Yes (Hospitalization)
  Sender: FDA-Public Use
  Company Number: 2004-DE-026979DE

PATIENT
  Age: 81 Year
  Sex: Male

DRUGS (7)
  1. SIFROL (PRAMIPEXOLE DIHYDROCHLORIDE) (TA) (PRAMIPEXOLE) [Suspect]
     Dosage: 1.8 MG (R, 4 X 0,45 MG/DAY), PO
     Route: 048
  2. ENALAPRIL [Concomitant]
  3. FUROSEMIDE [Concomitant]
  4. ALLOPURINOL [Concomitant]
  5. MADOPAR (MADOPAR) [Concomitant]
  6. DIGOXIN [Concomitant]
  7. FERROSANOL [Concomitant]

REACTIONS (3)
  - HALLUCINATION [None]
  - OVERDOSE [None]
  - RENAL FAILURE [None]
